FAERS Safety Report 16579615 (Version 1)
Quarter: 2019Q3

REPORT INFORMATION
  Report Type: Spontaneous
  Country: JP (occurrence: JP)
  Receive Date: 20190716
  Receipt Date: 20190716
  Transmission Date: 20191004
  Serious: Yes (Other)
  Sender: FDA-Public Use
  Company Number: JP-JNJFOC-20190712364

PATIENT
  Age: 56 Year
  Sex: Male

DRUGS (2)
  1. TRAMCET [Suspect]
     Active Substance: ACETAMINOPHEN\TRAMADOL
     Indication: PRODUCT USED FOR UNKNOWN INDICATION
     Route: 048
  2. MYSLEE [Concomitant]
     Active Substance: ZOLPIDEM TARTRATE
     Dosage: UNKNOWN
     Route: 048

REACTIONS (6)
  - Disturbance in attention [Unknown]
  - Altered state of consciousness [Unknown]
  - Dementia [Unknown]
  - Amnesia [Unknown]
  - Off label use [Unknown]
  - Inappropriate schedule of product administration [Unknown]
